FAERS Safety Report 24637285 (Version 1)
Quarter: 2024Q4

REPORT INFORMATION
  Report Type: Spontaneous
  Country: US (occurrence: US)
  Receive Date: 20241119
  Receipt Date: 20241119
  Transmission Date: 20250115
  Serious: No
  Sender: MYLAN
  Company Number: US-MYLANLABS-2024M1102847

PATIENT
  Age: 84 Year
  Sex: Male
  Weight: 109.77 kg

DRUGS (1)
  1. ALPRAZOLAM [Suspect]
     Active Substance: ALPRAZOLAM
     Indication: Product used for unknown indication
     Dosage: 0.5 MILLIGRAM(ONE TABLET 4 HOURS PRIOR TO MRI AND 1 TAB JUST PRIOR TO MRI)
     Route: 065
     Dates: start: 20230822

REACTIONS (1)
  - Off label use [Unknown]

NARRATIVE: CASE EVENT DATE: 20230822
